FAERS Safety Report 7148679-8 (Version None)
Quarter: 2010Q4

REPORT INFORMATION
  Report Type: 
  Country: None (occurrence: None)
  Receive Date: 20101209
  Receipt Date: 20101207
  Transmission Date: 20110411
  Serious: Yes (Hospitalization)
  Sender: FDA-Public Use
  Company Number: CA-ROCHE-682730

PATIENT
  Sex: Female
  Weight: 46.1 kg

DRUGS (10)
  1. PEGINTERFERON ALFA-2A [Suspect]
     Indication: HEPATITIS C
     Route: 058
     Dates: start: 20090518
  2. PEGINTERFERON ALFA-2A [Suspect]
     Route: 058
     Dates: start: 20090727
  3. PEGINTERFERON ALFA-2A [Suspect]
     Route: 058
     Dates: start: 20090803
  4. PEGINTERFERON ALFA-2A [Suspect]
     Route: 058
     Dates: start: 20091002, end: 20100122
  5. RIBAVIRIN [Suspect]
     Indication: HEPATITIS C
     Route: 048
     Dates: start: 20090518
  6. RIBAVIRIN [Suspect]
     Route: 048
     Dates: start: 20090723
  7. RIBAVIRIN [Suspect]
     Route: 048
     Dates: start: 20090731, end: 20091022
  8. RIBAVIRIN [Suspect]
     Route: 048
     Dates: start: 20091023, end: 20100128
  9. BLINDED BI 201335 NA [Suspect]
     Indication: HEPATITIS C
     Route: 048
     Dates: start: 20090518, end: 20091029
  10. BI 201335 NA [Suspect]
     Indication: HEPATITIS C
     Dosage: PRETREATMENT
     Route: 065

REACTIONS (1)
  - HAEMATURIA [None]
